FAERS Safety Report 6076187-4 (Version None)
Quarter: 2009Q1

REPORT INFORMATION
  Report Type: 
  Country: None (occurrence: None)
  Receive Date: 20090212
  Receipt Date: 20090206
  Transmission Date: 20090719
  Serious: Yes (Hospitalization)
  Sender: FDA-Public Use
  Company Number: DE-AMGEN-UK332384

PATIENT
  Age: 57 Year
  Sex: Male

DRUGS (4)
  1. VECTIBIX [Suspect]
     Indication: COLORECTAL CANCER
     Route: 042
     Dates: start: 20090113, end: 20090127
  2. VECTIBIX [Suspect]
     Route: 042
     Dates: start: 20090127, end: 20090127
  3. CARDIOVASCULAR SYSTEM DRUGS [Suspect]
  4. UNSPECIFIED DIURETIC [Concomitant]
     Route: 065

REACTIONS (3)
  - BLOOD BILIRUBIN INCREASED [None]
  - BLOOD CREATININE INCREASED [None]
  - CELLS IN URINE [None]
